FAERS Safety Report 5255706-1 (Version None)
Quarter: 2007Q1

REPORT INFORMATION
  Report Type: 
  Country: None (occurrence: None)
  Receive Date: 20070305
  Receipt Date: 20070221
  Transmission Date: 20070707
  Serious: Yes (Hospitalization, Other)
  Sender: FDA-Public Use
  Company Number: PFIZER INC-2007014637

PATIENT
  Age: 23 Year
  Sex: Female

DRUGS (2)
  1. HALCION [Suspect]
     Route: 048
  2. TOFRANIL [Concomitant]
     Route: 048

REACTIONS (9)
  - BLISTER [None]
  - BLOOD ALBUMIN DECREASED [None]
  - BLOOD CHOLESTEROL DECREASED [None]
  - COMA [None]
  - OVERDOSE [None]
  - PROTEIN TOTAL DECREASED [None]
  - SKIN GRAFT INFECTION [None]
  - SOFT TISSUE NECROSIS [None]
  - WHITE BLOOD CELL COUNT INCREASED [None]
